FAERS Safety Report 6693386-9 (Version None)
Quarter: 2010Q2

REPORT INFORMATION
  Report Type: 
  Country: None (occurrence: None)
  Receive Date: 20100420
  Receipt Date: 20100406
  Transmission Date: 20101027
  Serious: Yes (Other)
  Sender: FDA-Public Use
  Company Number: 006146

PATIENT

DRUGS (1)
  1. VIMPAT [Suspect]

REACTIONS (1)
  - ACUTE MYOCARDIAL INFARCTION [None]
